FAERS Safety Report 19100043 (Version 1)
Quarter: 2021Q2

REPORT INFORMATION
  Report Type: Spontaneous
  Country: US (occurrence: US)
  Receive Date: 20210407
  Receipt Date: 20210407
  Transmission Date: 20210717
  Serious: Yes (Other)
  Sender: FDA-Public Use
  Company Number: US-PROCTER_AND_GAMBLE-PH21002513

PATIENT

DRUGS (1)
  1. ZZZQUIL NIGHTTIME SLEEP?AID [Suspect]
     Active Substance: DIPHENHYDRAMINE HYDROCHLORIDE
     Dosage: UNK
     Route: 048

REACTIONS (1)
  - Drug abuse [Unknown]
